FAERS Safety Report 6359878-7 (Version None)
Quarter: 2009Q3

REPORT INFORMATION
  Report Type: 
  Country: None (occurrence: None)
  Receive Date: 20090917
  Receipt Date: 20090914
  Transmission Date: 20100115
  Serious: Yes (Other)
  Sender: FDA-Public Use
  Company Number: JP-BRISTOL-MYERS SQUIBB COMPANY-14779904

PATIENT
  Age: 70 Year
  Sex: Female

DRUGS (4)
  1. PARAPLATIN [Suspect]
     Indication: GINGIVAL CANCER
     Dosage: ANOTHER ADMINISTRATION: FEB05.
     Route: 041
     Dates: start: 20040901
  2. DOCETAXEL [Suspect]
     Indication: GINGIVAL CANCER
     Dosage: ANOTHER ADM:FEB05.
     Route: 042
     Dates: start: 20040901
  3. FLUOROURACIL [Suspect]
     Indication: GINGIVAL CANCER
     Dosage: ANOTHERADM:FEB05.
     Dates: start: 20040901
  4. ELECTROLYTES [Concomitant]

REACTIONS (1)
  - INAPPROPRIATE ANTIDIURETIC HORMONE SECRETION [None]
